FAERS Safety Report 8934731 (Version 1)
Quarter: 2012Q4

REPORT INFORMATION
  Report Type: 
  Country: US (occurrence: US)
  Receive Date: 20121129
  Receipt Date: 20121129
  Transmission Date: 20130627
  Serious: Yes (Other)
  Sender: FDA-Public Use
  Company Number: CHPA2012US023379

PATIENT
  Age: 60 Year
  Sex: Female

DRUGS (4)
  1. 4 WAY FAST ACTING NASAL SPRAY [Suspect]
     Indication: SINUS DISORDER
     Dosage: 2 DROPS, ONCE
     Dates: start: 20121108, end: 20121108
  2. 4 WAY FAST ACTING NASAL SPRAY [Suspect]
     Dosage: 1 DF PER NOSTRIL, PRN
     Route: 045
  3. ZYRTEC-D [Concomitant]
     Indication: HYPERSENSITIVITY
     Dosage: Unk, Unk
  4. REFRESH TEARS [Concomitant]
     Indication: EYE IRRITATION
     Dosage: Unk, Unk

REACTIONS (13)
  - Deafness [Not Recovered/Not Resolved]
  - Corneal abrasion [Not Recovered/Not Resolved]
  - Cataract [Not Recovered/Not Resolved]
  - Intervertebral disc degeneration [Not Recovered/Not Resolved]
  - Osteoarthritis [Not Recovered/Not Resolved]
  - Pain [Not Recovered/Not Resolved]
  - Fibromyalgia [Not Recovered/Not Resolved]
  - Lichen sclerosus [Not Recovered/Not Resolved]
  - Road traffic accident [Recovered/Resolved]
  - Burning sensation [Recovered/Resolved]
  - Off label use [Unknown]
  - Underdose [Unknown]
  - Accidental exposure to product [Unknown]
